FAERS Safety Report 26099386 (Version 1)
Quarter: 2025Q4

REPORT INFORMATION
  Report Type: Spontaneous
  Country: US (occurrence: US)
  Receive Date: 20251128
  Receipt Date: 20251128
  Transmission Date: 20260117
  Serious: Yes (Hospitalization)
  Sender: GENETIX BIOTHERAPEUTICS INC.
  Company Number: US-GENETIX BIOTHERAPEUTICS INC.-US-BBB-25-00087

PATIENT

DRUGS (1)
  1. LYFGENIA [Suspect]
     Active Substance: LOVOTIBEGLOGENE AUTOTEMCEL
     Indication: Sickle cell disease
     Dosage: UNK, UNK
     Route: 065

REACTIONS (1)
  - Glycosylated haemoglobin decreased [Unknown]

NARRATIVE: CASE EVENT DATE: 20251014
